FAERS Safety Report 24059758 (Version 1)
Quarter: 2024Q3

REPORT INFORMATION
  Report Type: Spontaneous
  Country: FR (occurrence: FR)
  Receive Date: 20240708
  Receipt Date: 20240708
  Transmission Date: 20241017
  Serious: Yes (Life-Threatening)
  Sender: ACCORD
  Company Number: None

PATIENT
  Age: 61 Year
  Sex: Female
  Weight: 61.5 kg

DRUGS (7)
  1. CARBOPLATIN [Suspect]
     Active Substance: CARBOPLATIN
     Indication: Ovarian cancer
     Dosage: 10 MG/ML
     Dates: start: 20240516, end: 20240606
  2. GUAIFENESINE, DEXCHLORPHENIRAMINE [Concomitant]
  3. PACLITAXEL [Concomitant]
     Active Substance: PACLITAXEL
     Dosage: 6 MG/ML, CONCENTRATE FOR SOLUTION FOR INFUSION
  4. ONDANSETRON [Concomitant]
     Active Substance: ONDANSETRON
  5. EMEND [Concomitant]
     Active Substance: APREPITANT
  6. RANITIDINE HYDROCHLORIDE [Concomitant]
     Active Substance: RANITIDINE HYDROCHLORIDE
  7. METHYLPREDNISOLONE [Concomitant]
     Active Substance: METHYLPREDNISOLONE

REACTIONS (1)
  - Anaphylactic shock [Recovered/Resolved]

NARRATIVE: CASE EVENT DATE: 20240606
